FAERS Safety Report 7430973-4 (Version None)
Quarter: 2011Q2

REPORT INFORMATION
  Report Type: 
  Country: None (occurrence: None)
  Receive Date: 20110421
  Receipt Date: 20110420
  Transmission Date: 20111010
  Serious: Yes (Hospitalization, Other)
  Sender: FDA-Public Use
  Company Number: GB-PFIZER INC-2011057397

PATIENT
  Age: 71 Year
  Sex: Male

DRUGS (14)
  1. SALBUTAMOL [Concomitant]
  2. LAXIDO [Concomitant]
  3. SENNA [Concomitant]
  4. SIMVASTATIN [Concomitant]
     Indication: HYPERTENSION
  5. FLUCLOXACILLIN [Concomitant]
     Indication: INFECTION
  6. OMEPRAZOLE [Concomitant]
  7. PREDNISOLONE [Concomitant]
  8. AMPICILLIN SODIUM/SULBACTAM SODIUM [Concomitant]
  9. PHENYTOIN [Suspect]
     Indication: CONVULSION
     Dosage: 300MG/DAY
     Route: 048
     Dates: start: 20110129, end: 20110213
  10. IPRATROPIUM BROMIDE [Concomitant]
  11. LACTULOSE [Concomitant]
  12. DIHYDROCODEINE [Concomitant]
  13. LISINOPRIL [Concomitant]
     Indication: HYPERTENSION
  14. ACETYLSALICYLIC ACID [Concomitant]
     Indication: HYPERTENSION

REACTIONS (17)
  - HEPATOTOXICITY [None]
  - HEPATIC ENZYME ABNORMAL [None]
  - BLOOD SODIUM DECREASED [None]
  - COORDINATION ABNORMAL [None]
  - SOMNOLENCE [None]
  - ABDOMINAL TENDERNESS [None]
  - TOXICITY TO VARIOUS AGENTS [None]
  - PNEUMONIA [None]
  - BALANCE DISORDER [None]
  - ANTIDIURETIC HORMONE ABNORMALITY [None]
  - CONFUSIONAL STATE [None]
  - NYSTAGMUS [None]
  - DYSARTHRIA [None]
  - TREMOR [None]
  - CHOLANGITIS [None]
  - INFECTION [None]
  - BILE DUCT OBSTRUCTION [None]
